FAERS Safety Report 7128132-8 (Version None)
Quarter: 2010Q4

REPORT INFORMATION
  Report Type: 
  Country: None (occurrence: None)
  Receive Date: 20101130
  Receipt Date: 20101116
  Transmission Date: 20110411
  Serious: Yes (Hospitalization)
  Sender: FDA-Public Use
  Company Number: IT-CELGENEUS-083-20785-10091100

PATIENT
  Sex: Female

DRUGS (7)
  1. THALIDOMIDE [Suspect]
     Indication: MULTIPLE MYELOMA
     Route: 048
     Dates: start: 20091221, end: 20100314
  2. ZESTORETIC [Concomitant]
     Dosage: 20/12.5 MG
     Route: 065
  3. NORVASC [Concomitant]
     Route: 065
  4. ESOPRAL [Concomitant]
     Route: 065
  5. ASPIRIN [Concomitant]
     Route: 065
  6. ENTEROLACTIS DUO [Concomitant]
     Route: 065
  7. CIPRALEX [Concomitant]
     Route: 065

REACTIONS (1)
  - INTESTINAL OBSTRUCTION [None]
